FAERS Safety Report 16322352 (Version 2)
Quarter: 2019Q2

REPORT INFORMATION
  Report Type: Spontaneous
  Country: KR (occurrence: KR)
  Receive Date: 20190516
  Receipt Date: 20190528
  Transmission Date: 20190711
  Serious: Yes (Death, Hospitalization, Other)
  Sender: FDA-Public Use
  Company Number: KR-009507513-1905KOR006769

PATIENT
  Sex: Female

DRUGS (4)
  1. HERBEN [Concomitant]
     Active Substance: DILTIAZEM HYDROCHLORIDE
     Dosage: UNK, QUANTITY 2 DAYS 3
     Dates: start: 20190416, end: 20190417
  2. ADENOCOR [Concomitant]
     Dosage: UNK, QUANTITY 2 DAYS 1
     Dates: start: 20190416
  3. KEYTRUDA [Suspect]
     Active Substance: PEMBROLIZUMAB
     Indication: GALLBLADDER CANCER
     Dosage: QUANTITY 2, DAY 1
     Dates: start: 20190416
  4. DISOLRIN [Concomitant]
     Dosage: UNK, QUANTITY 1  DAYS 1
     Dates: start: 20190416

REACTIONS (3)
  - Product use in unapproved indication [Unknown]
  - Malignant neoplasm progression [Fatal]
  - Adverse event [Unknown]

NARRATIVE: CASE EVENT DATE: 201904
